FAERS Safety Report 17553075 (Version 1)
Quarter: 2020Q1

REPORT INFORMATION
  Report Type: Spontaneous
  Country: US (occurrence: US)
  Receive Date: 20200317
  Receipt Date: 20200317
  Transmission Date: 20200409
  Serious: Yes (Other)
  Sender: FDA-Public Use
  Company Number: NVSC2020US069327

PATIENT
  Age: 73 Year
  Sex: Female
  Weight: 64.41 kg

DRUGS (4)
  1. IBRANCE [Suspect]
     Active Substance: PALBOCICLIB
     Dosage: 100 MG, QD, (FOR 21 DAYS AND 1 WEEK OFF)
     Route: 048
     Dates: start: 201807, end: 20200124
  2. CALCIUM [Concomitant]
     Active Substance: CALCIUM
     Indication: ORAL PAIN
     Dosage: UNK
     Route: 065
  3. IBRANCE [Suspect]
     Active Substance: PALBOCICLIB
     Indication: BREAST CANCER
     Dosage: 125 MG
     Route: 065
  4. LETROZOLE. [Suspect]
     Active Substance: LETROZOLE
     Indication: BREAST CANCER
     Dosage: 2.5 MG, QD
     Route: 048

REACTIONS (6)
  - Immunodeficiency [Unknown]
  - Pulmonary mass [Recovering/Resolving]
  - Pneumonia [Recovered/Resolved]
  - Oral disorder [Unknown]
  - Fungal infection [Recovered/Resolved]
  - Influenza [Recovered/Resolved]

NARRATIVE: CASE EVENT DATE: 201906
